FAERS Safety Report 23509904 (Version 5)
Quarter: 2025Q3

REPORT INFORMATION
  Report Type: Spontaneous
  Country: EU (occurrence: EU)
  Receive Date: 20240211
  Receipt Date: 20250703
  Transmission Date: 20251020
  Serious: Yes (Death, Hospitalization, Other)
  Sender: AUROBINDO
  Company Number: EU-STADA-01186043

PATIENT
  Age: 16 Year
  Sex: Male

DRUGS (11)
  1. AZACITIDINE [Suspect]
     Active Substance: AZACITIDINE
     Indication: Acute myeloid leukaemia
     Dosage: 125 MILLIGRAM, ONCE A DAY
     Route: 065
  2. AZACITIDINE [Suspect]
     Active Substance: AZACITIDINE
     Indication: Shwachman-Diamond syndrome
  3. AZACITIDINE [Suspect]
     Active Substance: AZACITIDINE
     Indication: Myelodysplastic syndrome
  4. FLUDARABINE [Suspect]
     Active Substance: FLUDARABINE PHOSPHATE
     Indication: Acute myeloid leukaemia
     Dosage: 30 MILLIGRAM/SQ. METER, ONCE A DAY(CYCLICAL)
     Route: 065
  5. CYTARABINE [Suspect]
     Active Substance: CYTARABINE
     Indication: Acute myeloid leukaemia
     Route: 042
  6. CYTARABINE [Suspect]
     Active Substance: CYTARABINE
     Dosage: 2000 MILLIGRAM/SQ. METER, ONCE A DAY, CYCLICAL
     Route: 065
  7. THIOGUANINE [Suspect]
     Active Substance: THIOGUANINE
     Indication: Acute myeloid leukaemia
     Route: 048
  8. VENETOCLAX [Suspect]
     Active Substance: VENETOCLAX
     Indication: Acute myeloid leukaemia
     Dosage: 100 MILLIGRAM, ONCE A DAY(STARTED AT A DOSE OF 100MG/DAY AND GRADUALLY INCREASED BY 100MG/DAY UP TO
     Route: 065
  9. VENETOCLAX [Suspect]
     Active Substance: VENETOCLAX
     Indication: Myelodysplastic syndrome
     Dosage: 800 MILLIGRAM, ONCE A DAY
     Route: 065
  10. VENETOCLAX [Suspect]
     Active Substance: VENETOCLAX
     Indication: Shwachman-Diamond syndrome
  11. CYTARABINE [Suspect]
     Active Substance: CYTARABINE
     Indication: Acute myeloid leukaemia
     Route: 042

REACTIONS (17)
  - Therapy non-responder [Fatal]
  - Multiple organ dysfunction syndrome [Fatal]
  - Escherichia sepsis [Fatal]
  - Staphylococcal sepsis [Fatal]
  - Thrombocytopenia [Unknown]
  - Stomatitis [Unknown]
  - Fluid retention [Recovered/Resolved]
  - Stenotrophomonas infection [Unknown]
  - Diarrhoea [Unknown]
  - Urticaria [Recovered/Resolved]
  - Oedema peripheral [Unknown]
  - Acute myeloid leukaemia [Unknown]
  - Infection [Recovered/Resolved]
  - Toxicity to various agents [Unknown]
  - Therapeutic product effect incomplete [Unknown]
  - Off label use [Recovered/Resolved]
  - Drug ineffective [Unknown]
